FAERS Safety Report 5381549-4 (Version None)
Quarter: 2007Q3

REPORT INFORMATION
  Report Type: 
  Country: None (occurrence: None)
  Receive Date: 20070709
  Receipt Date: 20070628
  Transmission Date: 20080115
  Serious: Yes (Hospitalization, Other)
  Sender: FDA-Public Use
  Company Number: US-GENENTECH-239559

PATIENT
  Age: 24 Year
  Sex: Female

DRUGS (5)
  1. AVASTIN [Suspect]
     Indication: INFLAMMATORY CARCINOMA OF THE BREAST
     Dosage: 10 MG/KG, QOW
     Route: 042
     Dates: start: 20061226
  2. CARBOPLATIN [Concomitant]
     Indication: INFLAMMATORY CARCINOMA OF THE BREAST
     Dosage: 2 AUC, UNK
     Route: 042
     Dates: start: 20070103
  3. GEMCITABINE HCL [Concomitant]
     Indication: INFLAMMATORY CARCINOMA OF THE BREAST
     Dosage: 800 MG/M2, UNK
     Route: 042
     Dates: start: 20070103
  4. ZOMETA [Concomitant]
     Indication: METASTASES TO BONE
     Dosage: 4 MG, UNK
     Route: 042
     Dates: start: 20070208
  5. DARBEPOETIN ALFA [Concomitant]
     Indication: DRUG USE FOR UNKNOWN INDICATION
     Dosage: 200 MG, QOD
     Dates: start: 20070208

REACTIONS (4)
  - DIPLOPIA [None]
  - DIZZINESS [None]
  - HEADACHE [None]
  - INTRACRANIAL PRESSURE INCREASED [None]
